FAERS Safety Report 11589965 (Version 1)
Quarter: 2015Q4

REPORT INFORMATION
  Report Type: Spontaneous
  Country: US (occurrence: US)
  Receive Date: 20151002
  Receipt Date: 20151002
  Transmission Date: 20160304
  Serious: No
  Sender: FDA-Public Use
  Company Number: US-PFIZER INC-2015328726

PATIENT
  Age: 40 Year
  Sex: Male

DRUGS (3)
  1. LYRICA [Suspect]
     Active Substance: PREGABALIN
     Indication: FIBROMYALGIA
     Dosage: 50 MG, UNK
     Dates: start: 201509, end: 201509
  2. LYRICA [Suspect]
     Active Substance: PREGABALIN
     Dosage: 225 MG, UNK
     Dates: start: 201509
  3. ASPIRIN. [Concomitant]
     Active Substance: ASPIRIN
     Dosage: UNK

REACTIONS (2)
  - Weight increased [Recovered/Resolved]
  - Weight decreased [Unknown]
